FAERS Safety Report 9352375 (Version 2)
Quarter: 2013Q3

REPORT INFORMATION
  Report Type: Report from Study
  Country: US (occurrence: US)
  Receive Date: 20130617
  Receipt Date: 20130708
  Transmission Date: 20140515
  Serious: Yes (Other)
  Sender: FDA-Public Use
  Company Number: US-ELI_LILLY_AND_COMPANY-US201306003000

PATIENT
  Age: 64 Year
  Sex: Male

DRUGS (2)
  1. TERIPARATIDE [Suspect]
     Indication: OSTEOPENIA
     Dosage: UNK
     Dates: start: 20130531
  2. TERIPARATIDE [Suspect]
     Indication: WOUND HEALING NORMAL

REACTIONS (2)
  - Cervical spinal stenosis [Recovering/Resolving]
  - Off label use [Not Recovered/Not Resolved]
